FAERS Safety Report 8322984-1 (Version None)
Quarter: 2012Q2

REPORT INFORMATION
  Report Type: 
  Country: None (occurrence: None)
  Receive Date: 20120430
  Receipt Date: 20120416
  Transmission Date: 20120825
  Serious: Yes (Hospitalization, Other)
  Sender: FDA-Public Use
  Company Number: US-MYLANLABS-2009AC000220

PATIENT
  Age: 54 Year
  Sex: Male
  Weight: 124.15 kg

DRUGS (52)
  1. ALLOPURINOL [Concomitant]
  2. LASIX [Concomitant]
  3. COREG [Concomitant]
  4. PROMETHAZINE [Concomitant]
  5. CLINDAMYCIN [Concomitant]
  6. AUGMENTIN [Concomitant]
  7. CIPROFLOXACIN HCL [Concomitant]
  8. BISOPROLOL FUMARATE AND HYDROCHLOROTHIAZIDE [Concomitant]
  9. ATACAND HCT [Concomitant]
  10. DIGOXIN [Suspect]
     Route: 048
     Dates: start: 20070426, end: 20080428
  11. SPIRONOLACTONE [Concomitant]
  12. AVONEX [Concomitant]
  13. AMBIEN [Concomitant]
  14. POTASSIUM CHLORIDE [Concomitant]
  15. METOLAZONE [Concomitant]
  16. TRAMADOL HCL [Concomitant]
  17. APIDRA [Concomitant]
  18. GANI-TUSS DM NR [Concomitant]
  19. FUROSEMIDE [Concomitant]
  20. BIAXIN [Concomitant]
  21. PROAIR HFA [Concomitant]
  22. AZITHROMYCIN [Concomitant]
  23. LEVAQUIN [Concomitant]
  24. ADVAIR DISKUS 100/50 [Concomitant]
  25. PENICILLIN [Concomitant]
  26. AMOXICILLIN [Concomitant]
  27. PROMETHAZINE DM [Concomitant]
  28. ALBUTEROL [Concomitant]
  29. AVANDAMET [Concomitant]
  30. KETOCONAZOLE [Concomitant]
  31. VIAGRA [Concomitant]
  32. ENALAPRIL MALEATE [Concomitant]
  33. ASPIRIN [Concomitant]
  34. LEVEMIR [Concomitant]
  35. JANUVIA [Concomitant]
  36. OMNICEF /00497602/ [Concomitant]
  37. LIPITOR [Concomitant]
  38. METFORMIN HCL [Concomitant]
  39. TYLENOL (CAPLET) [Concomitant]
  40. IMDUR [Concomitant]
  41. SYMBICORT [Concomitant]
  42. CRESTOR [Concomitant]
  43. LANTUS [Concomitant]
  44. CITALOPRAM [Concomitant]
  45. CRESTOR [Concomitant]
  46. NITROGLYCERIN [Concomitant]
  47. PREDNISONE [Concomitant]
  48. STARLIX [Concomitant]
  49. DIPHENHYDRAMINE HCL [Concomitant]
  50. SIMVASTATIN [Concomitant]
  51. OXYCODONE HCL [Concomitant]
  52. IMDUR [Concomitant]

REACTIONS (48)
  - CHRONIC OBSTRUCTIVE PULMONARY DISEASE [None]
  - TREATMENT NONCOMPLIANCE [None]
  - COUGH [None]
  - NASAL CONGESTION [None]
  - DIARRHOEA [None]
  - OBESITY [None]
  - BLOOD GLUCOSE INCREASED [None]
  - IMPLANTABLE DEFIBRILLATOR INSERTION [None]
  - FEELING ABNORMAL [None]
  - CHEST DISCOMFORT [None]
  - ASTHENIA [None]
  - SLEEP APNOEA SYNDROME [None]
  - CARDIAC MURMUR [None]
  - EJECTION FRACTION DECREASED [None]
  - FATIGUE [None]
  - DIZZINESS [None]
  - SNORING [None]
  - MITRAL VALVE INCOMPETENCE [None]
  - DIABETIC NEUROPATHY [None]
  - DYSLIPIDAEMIA [None]
  - PULSE ABNORMAL [None]
  - DIVERTICULITIS [None]
  - MEMORY IMPAIRMENT [None]
  - ARTHRALGIA [None]
  - FALL [None]
  - HYPOAESTHESIA [None]
  - METABOLIC SYNDROME [None]
  - DYSPNOEA [None]
  - OEDEMA PERIPHERAL [None]
  - MUSCULAR WEAKNESS [None]
  - SYNCOPE [None]
  - ARRHYTHMIA [None]
  - POLYNEUROPATHY IDIOPATHIC PROGRESSIVE [None]
  - WEIGHT INCREASED [None]
  - PARAESTHESIA [None]
  - CARDIAC FAILURE CONGESTIVE [None]
  - DIABETES MELLITUS [None]
  - BREATH SOUNDS ABNORMAL [None]
  - CAROTID BRUIT [None]
  - HYPERTENSION [None]
  - JOINT RANGE OF MOTION DECREASED [None]
  - NERVE COMPRESSION [None]
  - INJURY [None]
  - ASTHMA [None]
  - CARDIOMYOPATHY [None]
  - BENIGN PROSTATIC HYPERPLASIA [None]
  - LOSS OF CONSCIOUSNESS [None]
  - RALES [None]
